FAERS Safety Report 5921180-2 (Version None)
Quarter: 2008Q4

REPORT INFORMATION
  Report Type: 
  Country: None (occurrence: None)
  Receive Date: 20081016
  Receipt Date: 20081008
  Transmission Date: 20090506
  Serious: Yes (Death)
  Sender: FDA-Public Use
  Company Number: IT-WYE-H06207508

PATIENT
  Sex: Male
  Weight: 80 kg

DRUGS (12)
  1. AMIODAR [Suspect]
     Indication: ATRIAL FIBRILLATION
     Dosage: 300 MG IN 5% GLUCOSE TO BE INFUSED OVER 1 HOUR
     Route: 042
     Dates: start: 20080921, end: 20080921
  2. AMIODAR [Suspect]
     Indication: TACHYARRHYTHMIA
  3. AMIODAR [Suspect]
     Indication: VENTRICULAR FAILURE
  4. WARFARIN SODIUM [Concomitant]
     Dosage: VARIABLE DOSE TO KEEP INR BETWEEN 2 AND 3
     Route: 048
  5. FUROSEMIDE [Concomitant]
     Route: 048
     Dates: end: 20080919
  6. FUROSEMIDE [Concomitant]
     Dosage: NOT PROVIDED
     Route: 042
     Dates: start: 20080919
  7. PANTOPRAZOLE SODIUM [Concomitant]
     Route: 048
  8. RAMIPRIL [Concomitant]
     Route: 048
  9. BISOPROLOL FUMARATE [Concomitant]
     Route: 048
     Dates: end: 20080919
  10. TAMSULOSIN HCL [Concomitant]
     Route: 048
  11. GLUCOSE [Concomitant]
     Dosage: NOT PROVIDED
     Route: 042
  12. SPIRONOLACTONE [Concomitant]
     Route: 048

REACTIONS (2)
  - ANAPHYLACTIC SHOCK [None]
  - CARDIO-RESPIRATORY ARREST [None]
